FAERS Safety Report 4656766-9 (Version None)
Quarter: 2005Q2

REPORT INFORMATION
  Report Type: 
  Country: None (occurrence: None)
  Receive Date: 20050408
  Receipt Date: 20050216
  Transmission Date: 20051028
  Serious: No
  Sender: FDA-Public Use
  Company Number: 230603K05USA

PATIENT
  Age: 30 Year
  Sex: Female

DRUGS (2)
  1. REBIF (INTERFERON BETA) [Suspect]
     Indication: MULTIPLE SCLEROSIS
     Dosage: 22 MCG, 3 IN 1 WEEKS, SUBCUTANEOUS
     Route: 058
     Dates: start: 20050120
  2. TYLENOL [Concomitant]

REACTIONS (7)
  - DIARRHOEA [None]
  - HEADACHE [None]
  - INFLUENZA LIKE ILLNESS [None]
  - INJECTION SITE ERYTHEMA [None]
  - NAUSEA [None]
  - PAIN [None]
  - PYREXIA [None]
